FAERS Safety Report 9668474 (Version 1)
Quarter: 2013Q4

REPORT INFORMATION
  Report Type: Spontaneous
  Country: FR (occurrence: FR)
  Receive Date: 20131105
  Receipt Date: 20131105
  Transmission Date: 20140711
  Serious: Yes (Hospitalization)
  Sender: FDA-Public Use
  Company Number: FR-009507513-1310FRA014293

PATIENT
  Age: 31 Year
  Sex: Female

DRUGS (2)
  1. CELESTENE 4MG/1ML [Suspect]
     Indication: MATERNAL THERAPY TO ENHANCE FOETAL LUNG MATURITY
     Dosage: 12 MG, QD
     Route: 042
     Dates: start: 20131017, end: 20131018
  2. ADALATE [Suspect]
     Indication: TOCOLYSIS
     Dosage: 40 MG, QD
     Route: 048
     Dates: start: 20131018, end: 20131018

REACTIONS (1)
  - Acute pulmonary oedema [Recovered/Resolved]
